FAERS Safety Report 4520649-5 (Version None)
Quarter: 2004Q4

REPORT INFORMATION
  Report Type: 
  Country: None (occurrence: None)
  Receive Date: 20041207
  Receipt Date: 20041129
  Transmission Date: 20050328
  Serious: Yes (Other)
  Sender: FDA-Public Use
  Company Number: GB-MERCK-0411GBR00272

PATIENT
  Age: 69 Year
  Sex: Female

DRUGS (5)
  1. ZOCOR [Suspect]
     Indication: BLOOD CHOLESTEROL INCREASED
     Route: 048
     Dates: start: 20041104, end: 20041105
  2. COZAAR [Concomitant]
     Route: 048
     Dates: start: 20040809
  3. OMEPRAZOLE [Concomitant]
     Route: 048
     Dates: start: 20020801
  4. CLOPIDOGREL BISULFATE [Concomitant]
     Route: 048
     Dates: start: 20040809
  5. DOMPERIDONE [Concomitant]
     Route: 048
     Dates: start: 20040909

REACTIONS (2)
  - DYSPHAGIA [None]
  - HYPERSENSITIVITY [None]
